FAERS Safety Report 17716480 (Version 1)
Quarter: 2020Q2

REPORT INFORMATION
  Report Type: Spontaneous
  Country: SE (occurrence: SE)
  Receive Date: 20200428
  Receipt Date: 20200428
  Transmission Date: 20200714
  Serious: Yes (Other)
  Sender: FDA-Public Use
  Company Number: SE-ACCORD-179808

PATIENT
  Age: 45 Year
  Sex: Female
  Weight: 56 kg

DRUGS (2)
  1. LISINOPRIL. [Concomitant]
     Active Substance: LISINOPRIL
     Dates: start: 1989
  2. SIMVASTATIN. [Suspect]
     Active Substance: SIMVASTATIN
     Indication: PRODUCT USED FOR UNKNOWN INDICATION
     Dosage: 40 MG IN THE EVENING
     Dates: start: 20120420, end: 20200103

REACTIONS (1)
  - Head titubation [Recovering/Resolving]

NARRATIVE: CASE EVENT DATE: 201204
